FAERS Safety Report 8651705 (Version 4)
Quarter: 2013Q4

REPORT INFORMATION
  Report Type: Spontaneous
  Country: US (occurrence: US)
  Receive Date: 20120706
  Receipt Date: 20131112
  Transmission Date: 20140711
  Serious: Yes (Hospitalization, Other)
  Sender: FDA-Public Use
  Company Number: US-ASTRAZENECA-2012SE42067

PATIENT
  Age: 23346 Day
  Sex: Male

DRUGS (4)
  1. NEXIUM [Suspect]
     Route: 048
  2. PRILOSEC [Suspect]
     Route: 048
  3. TOPROL XL [Suspect]
     Route: 048
  4. TOPROL XL [Suspect]
     Route: 048

REACTIONS (11)
  - Haemorrhage [Unknown]
  - Nephrolithiasis [Unknown]
  - Renal failure [Unknown]
  - Stress [Unknown]
  - Weight increased [Unknown]
  - Back pain [Unknown]
  - Feeling abnormal [Unknown]
  - Feeling of despair [Unknown]
  - Feelings of worthlessness [Unknown]
  - Depressed mood [Unknown]
  - Drug ineffective [Unknown]
